FAERS Safety Report 7296782-4 (Version None)
Quarter: 2011Q1

REPORT INFORMATION
  Report Type: 
  Country: None (occurrence: None)
  Receive Date: 20110216
  Receipt Date: 20110209
  Transmission Date: 20110831
  Serious: Yes (Death, Hospitalization)
  Sender: FDA-Public Use
  Company Number: B0699006A

PATIENT
  Sex: Male

DRUGS (6)
  1. CELSENTRI [Suspect]
     Indication: PRODUCT USED FOR UNKNOWN INDICATION
     Dosage: 150MG TWICE PER DAY
     Route: 048
  2. ZIDOVUDINE [Concomitant]
  3. DARUNAVIR [Concomitant]
  4. KALETRA [Concomitant]
  5. ETRAVIRINE [Concomitant]
  6. RITONAVIR [Concomitant]

REACTIONS (4)
  - DYSPNOEA [None]
  - MALAISE [None]
  - DEATH [None]
  - PULMONARY EMBOLISM [None]
